FAERS Safety Report 24233542 (Version 1)
Quarter: 2024Q3

REPORT INFORMATION
  Report Type: Spontaneous
  Country: GB (occurrence: GB)
  Receive Date: 20240821
  Receipt Date: 20240821
  Transmission Date: 20241017
  Serious: Yes (Other)
  Sender: SANOFI AVENTIS
  Company Number: GB-MHRA-TPP32478549C22275880YC1723557738624

PATIENT
  Age: 81 Year
  Sex: Male
  Weight: 82 kg

DRUGS (19)
  1. CLOPIDOGREL BISULFATE [Suspect]
     Active Substance: CLOPIDOGREL BISULFATE
     Indication: Ill-defined disorder
     Dosage: UNK
     Route: 048
     Dates: start: 20240101, end: 20240701
  2. CALCIUM CARBONATE [Concomitant]
     Active Substance: CALCIUM CARBONATE
     Indication: Ill-defined disorder
     Dosage: 1 DF, BID (TAKE ONE TWICE DAILY)
     Dates: start: 20240712, end: 20240809
  3. SENNA LEAF [Concomitant]
     Active Substance: SENNA LEAF
     Indication: Ill-defined disorder
     Dosage: UNK UNK, QD (ONE OR TWO TO BE TAKEN AT NIGHT )
     Dates: start: 20230131, end: 20240813
  4. SENNA LEAF [Concomitant]
     Active Substance: SENNA LEAF
     Indication: Constipation
  5. AMLODIPINE [Concomitant]
     Active Substance: AMLODIPINE BESYLATE
     Indication: Ill-defined disorder
     Dosage: 1 DF, QD (ONE TO BE TAKEN EACH DAY)
     Dates: start: 20231229
  6. BUPRENORPHINE [Concomitant]
     Active Substance: BUPRENORPHINE
     Indication: Ill-defined disorder
     Dosage: 1 DF, QW (APPLY ONE PATCH EACH WEEK AS DIRECTED. REMOVE O.)
     Dates: start: 20231229, end: 20240813
  7. CANDESARTAN [Concomitant]
     Active Substance: CANDESARTAN
     Indication: Ill-defined disorder
     Dosage: 1 DF, QD (ONE TO BE TAKEN DAILY)
     Dates: start: 20231229
  8. CLOPIDOGREL [Concomitant]
     Active Substance: CLOPIDOGREL BISULFATE
     Indication: Ill-defined disorder
     Dosage: 1 DF, QD
     Dates: start: 20231229, end: 20240813
  9. DOXAZOSIN [Concomitant]
     Active Substance: DOXAZOSIN MESYLATE
     Indication: Ill-defined disorder
     Dosage: 1 DF, QD
     Dates: start: 20231229
  10. FINASTERIDE [Concomitant]
     Active Substance: FINASTERIDE
     Indication: Ill-defined disorder
     Dosage: 1 DF, QD (ONE TO BE TAKEN EACH DAY)
     Dates: start: 20231229
  11. LANSOPRAZOLE [Concomitant]
     Active Substance: LANSOPRAZOLE
     Indication: Ill-defined disorder
     Dosage: 1 DF, QD
     Dates: start: 20231229, end: 20240813
  12. LEVETIRACETAM [Concomitant]
     Active Substance: LEVETIRACETAM
     Indication: Ill-defined disorder
     Dosage: 2 DF, BID
     Dates: start: 20231229
  13. LIPITOR [Concomitant]
     Active Substance: ATORVASTATIN CALCIUM
     Indication: Ill-defined disorder
     Dosage: 1 DF, QD (TAKE ONE TABLET EACH DAY)
     Dates: start: 20231229
  14. CALCIUM CARBONATE\CHOLECALCIFEROL [Concomitant]
     Active Substance: CALCIUM CARBONATE\CHOLECALCIFEROL
     Indication: Ill-defined disorder
     Dosage: 1 DF, BID (TAKE ONE TWICE A DAY)
     Dates: start: 20231229
  15. ACETAMINOPHEN [Concomitant]
     Active Substance: ACETAMINOPHEN
     Indication: Ill-defined disorder
     Dosage: UNK (TWO TO BE TAKEN EVERY 4-6 HOURS UP TO FOUR TIME)
     Dates: start: 20231229
  16. FERROUS FUMARATE [Concomitant]
     Active Substance: FERROUS FUMARATE
     Indication: Ill-defined disorder
     Dosage: 1 DF, BID
     Dates: start: 20240717
  17. FYBOGEL [Concomitant]
     Active Substance: HERBALS\PLANTAGO OVATA SEED
     Indication: Ill-defined disorder
     Dosage: UNK UNK, QD (ONCE A DAY)
     Dates: start: 20240725
  18. ASPIRIN [Concomitant]
     Active Substance: ASPIRIN
     Indication: Ill-defined disorder
     Dosage: 1 DF, QD (1 TO BE TAKEN EACH MORNING)
     Dates: start: 20240813
  19. OMEPRAZOLE [Concomitant]
     Active Substance: OMEPRAZOLE
     Indication: Ill-defined disorder
     Dosage: 1 DF, QD (TAKE ONE CAPSULE EACH DAY, TAKE 2 HOURS AWAY FR)
     Dates: start: 20240813

REACTIONS (1)
  - Iron deficiency anaemia [Not Recovered/Not Resolved]
